FAERS Safety Report 9242133 (Version 1)
Quarter: 2013Q2

REPORT INFORMATION
  Report Type: Spontaneous
  Country: US (occurrence: US)
  Receive Date: 20130419
  Receipt Date: 20130419
  Transmission Date: 20140414
  Serious: No
  Sender: FDA-Public Use
  Company Number: US-009507513-1304USA007461

PATIENT
  Age: 21 Year
  Sex: Female

DRUGS (3)
  1. PEG-INTRON [Suspect]
     Indication: HEPATITIS C
     Dosage: 150MCG/0.5ML VIAL
     Route: 058
  2. RIBAVIRIN [Suspect]
     Dosage: UNK
     Route: 048
  3. TELAPREVIR [Suspect]
     Dosage: UNK

REACTIONS (3)
  - Fatigue [Unknown]
  - Asthenia [Unknown]
  - Influenza like illness [Unknown]
